FAERS Safety Report 5455246-0 (Version None)
Quarter: 2007Q3

REPORT INFORMATION
  Report Type: 
  Country: None (occurrence: None)
  Receive Date: 20070918
  Receipt Date: 20070906
  Transmission Date: 20080115
  Serious: Yes (Hospitalization)
  Sender: FDA-Public Use
  Company Number: US-JNJFOC-20070901473

PATIENT
  Sex: Female
  Weight: 58.97 kg

DRUGS (5)
  1. DURAGESIC-100 [Suspect]
     Route: 062
  2. DURAGESIC-100 [Suspect]
     Indication: FIBROMYALGIA
     Dosage: 100UG/HR AND 50UG/HR
     Route: 062
  3. DILANTIN [Concomitant]
     Indication: EPILEPSY
     Route: 048
  4. SYNTHROID [Concomitant]
     Indication: HYPOTHYROIDISM
     Route: 048
  5. DARVOCET [Concomitant]
     Indication: PAIN
     Dosage: AS NEEDED
     Route: 048

REACTIONS (8)
  - ANXIETY [None]
  - CHILLS [None]
  - FALL [None]
  - HIP FRACTURE [None]
  - INAPPROPRIATE SCHEDULE OF DRUG ADMINISTRATION [None]
  - PAIN [None]
  - TREMOR [None]
  - YAWNING [None]
